FAERS Safety Report 16608266 (Version 1)
Quarter: 2019Q3

REPORT INFORMATION
  Report Type: Spontaneous
  Country: DE (occurrence: DE)
  Receive Date: 20190722
  Receipt Date: 20190722
  Transmission Date: 20191004
  Serious: Yes (Hospitalization)
  Sender: FDA-Public Use
  Company Number: DE-TEVA-2019-DE-1079756

PATIENT
  Age: 32 Year
  Sex: Female

DRUGS (1)
  1. METOPROLOL. [Suspect]
     Active Substance: METOPROLOL
     Dosage: 47.5 MG, 1-0-1-0

REACTIONS (5)
  - Cardiovascular disorder [Unknown]
  - Dizziness [Unknown]
  - Paraesthesia [Unknown]
  - Hyperventilation [Unknown]
  - Anxiety [Unknown]
